FAERS Safety Report 7035484-6 (Version None)
Quarter: 2010Q4

REPORT INFORMATION
  Report Type: 
  Country: None (occurrence: None)
  Receive Date: 20101008
  Receipt Date: 20100930
  Transmission Date: 20110411
  Serious: Yes (Other)
  Sender: FDA-Public Use
  Company Number: US-ABBOTT-10P-163-0629803-00

PATIENT
  Sex: Male
  Weight: 79.45 kg

DRUGS (8)
  1. HUMIRA [Suspect]
     Indication: CROHN'S DISEASE
     Route: 058
     Dates: start: 20090102, end: 20100302
  2. PREDNISONE [Concomitant]
     Indication: CROHN'S DISEASE
     Dosage: DAILY AS REQUIRED FOR CROHN'S FLARES, THEN WEANS OFF
     Dates: end: 20081201
  3. AZATHIOPRINE [Concomitant]
     Indication: CROHN'S DISEASE
     Dates: end: 20090101
  4. ASACOL [Concomitant]
     Indication: CROHN'S DISEASE
     Dates: end: 19990901
  5. METRONIDAZOLE [Concomitant]
     Indication: RECTAL ABSCESS
     Dates: start: 20100120, end: 20100203
  6. CIPROFLOXACIN [Concomitant]
     Indication: RECTAL ABSCESS
     Dates: start: 20100120, end: 20100203
  7. BUDESONIDE [Concomitant]
     Indication: COLITIS
     Dosage: 3 MG 3 TABS
     Route: 048
     Dates: start: 20090801, end: 20100610
  8. BUDESONIDE [Concomitant]
     Indication: PROPHYLAXIS

REACTIONS (4)
  - COUGH [None]
  - PYREXIA [None]
  - TACHYCARDIA [None]
  - WEIGHT DECREASED [None]
